FAERS Safety Report 16998445 (Version 1)
Quarter: 2019Q4

REPORT INFORMATION
  Report Type: Spontaneous
  Country: GB (occurrence: GB)
  Receive Date: 20191106
  Receipt Date: 20191106
  Transmission Date: 20200122
  Serious: Yes (Other)
  Sender: FDA-Public Use
  Company Number: GB-TEVA-2019-GB-1131163

PATIENT
  Age: 83 Year
  Sex: Female
  Weight: 63 kg

DRUGS (14)
  1. ATORVASTATIN [Concomitant]
     Active Substance: ATORVASTATIN
     Dosage: 1 DOSAGE FORMS PER DAY
     Dates: start: 20190313
  2. RAMIPRIL. [Concomitant]
     Active Substance: RAMIPRIL
     Dosage: AT NIGHT, 1 DOSAGE FORMS PER DAY
     Dates: start: 20190313
  3. ALENDRONIC ACID [Concomitant]
     Active Substance: ALENDRONIC ACID
     Dosage: WITH A FULL GLASS OF WATER, 30 ...,  1 DOSAGE FORMS PER WEEK
     Dates: start: 20190313
  4. OMEPRAZOLE. [Concomitant]
     Active Substance: OMEPRAZOLE
     Dosage: 1 DOSAGE FORMS PER DAY
     Dates: start: 20190313
  5. ANORO ELLIPTA [Concomitant]
     Active Substance: UMECLIDINIUM BROMIDE\VILANTEROL TRIFENATATE
     Indication: ILL-DEFINED DISORDER
     Dosage: (AMBER 3)  (UMECLIDINIUM 65 MICROGRAMS +  VILAN...
     Dates: start: 20190927
  6. LERCANIDIPINE HYDROCHLORIDE [Concomitant]
     Active Substance: LERCANIDIPINE HYDROCHLORIDE
     Dosage: 1 DOSAGE FORMS PER DAY
     Dates: start: 20190313
  7. BETAHISTINE [Concomitant]
     Active Substance: BETAHISTINE
     Dosage: 3 DOSAGE FORMS PER DAY
     Dates: start: 20190313
  8. PREDNISOLONE. [Concomitant]
     Active Substance: PREDNISOLONE
     Indication: CHRONIC OBSTRUCTIVE PULMONARY DISEASE
     Dosage: SIX TABLETS (30MG) ...
     Dates: start: 20190313
  9. CALCI-D [Concomitant]
     Active Substance: CALCIUM CARBONATE\CHOLECALCIFEROL
     Dosage: 1 DOSAGE FORMS PER DAY
     Dates: start: 20190313
  10. AMOXICILLIN. [Concomitant]
     Active Substance: AMOXICILLIN
     Indication: CHRONIC OBSTRUCTIVE PULMONARY DISEASE
     Dosage: ONE TO BE TAKEN THRE...
     Dates: start: 20190313
  11. NITROFURANTOIN. [Suspect]
     Active Substance: NITROFURANTOIN
     Dosage: 100 MG, MODIFIED RELEASE.
     Dates: start: 20191008
  12. FOSTAIR [Concomitant]
     Active Substance: BECLOMETHASONE\FORMOTEROL
     Dates: start: 20190313, end: 20190927
  13. SALBUTAMOL [Concomitant]
     Active Substance: ALBUTEROL
     Dosage: 2 DOSAGE FORMS
     Route: 055
     Dates: start: 20190313
  14. BENDROFLUMETHIAZIDE [Concomitant]
     Active Substance: BENDROFLUMETHIAZIDE
     Dosage: EACH MORNING, 1 DOSAGE FORMS PER DAY
     Dates: start: 20190313

REACTIONS (2)
  - Skin burning sensation [Unknown]
  - Rash erythematous [Recovered/Resolved]

NARRATIVE: CASE EVENT DATE: 20191008
